FAERS Safety Report 10065052 (Version 6)
Quarter: 2014Q2

REPORT INFORMATION
  Report Type: Spontaneous
  Country: JP (occurrence: JP)
  Receive Date: 20140408
  Receipt Date: 20140610
  Transmission Date: 20141212
  Serious: Yes (Death, Other)
  Sender: FDA-Public Use
  Company Number: JP-BRISTOL-MYERS SQUIBB COMPANY-20408985

PATIENT
  Age: 75 Year
  Sex: Male
  Weight: 68 kg

DRUGS (5)
  1. ERBITUX SOLN FOR INF 5MG/ML [Suspect]
     Indication: COLORECTAL CANCER
     Dosage: 400 MG:24DEC13-17FEB2014?600MG:17-DEC-2013
     Route: 041
     Dates: start: 20131217, end: 20140217
  2. 5-FLUOROURACIL [Suspect]
     Indication: COLORECTAL CANCER
     Route: 041
     Dates: start: 20131217, end: 20140210
  3. CALCIUM FOLINATE [Suspect]
     Indication: COLORECTAL CANCER
     Route: 041
     Dates: start: 20131217, end: 20140210
  4. OXALIPLATIN [Suspect]
     Indication: COLORECTAL CANCER
     Dosage: 140 MG.
     Route: 041
     Dates: start: 20131217, end: 20140210
  5. MINOMYCIN [Suspect]
     Indication: PROPHYLAXIS
     Dosage: STOP DATE 17-FEB-2014.
     Route: 048
     Dates: start: 20131217, end: 20140217

REACTIONS (3)
  - Interstitial lung disease [Fatal]
  - Pneumothorax [Not Recovered/Not Resolved]
  - Neuropathy peripheral [Unknown]
